FAERS Safety Report 6211394-9 (Version None)
Quarter: 2009Q2

REPORT INFORMATION
  Report Type: 
  Country: None (occurrence: None)
  Receive Date: 20090602
  Receipt Date: 20090305
  Transmission Date: 20091009
  Serious: Yes (Other)
  Sender: FDA-Public Use
  Company Number: KR-ELI_LILLY_AND_COMPANY-KR200903001155

PATIENT
  Age: 57 Year
  Sex: Female

DRUGS (2)
  1. HUMULIN N [Suspect]
     Indication: TYPE 2 DIABETES MELLITUS
     Dosage: 14 U, UNK
     Route: 058
     Dates: start: 20090129
  2. ANTIHYPERTENSIVES [Concomitant]

REACTIONS (3)
  - DIZZINESS [None]
  - EXPIRED DRUG ADMINISTERED [None]
  - FALL [None]
